FAERS Safety Report 5222650-5 (Version None)
Quarter: 2006Q4

REPORT INFORMATION
  Report Type: 
  Country: None (occurrence: None)
  Receive Date: 20061205
  Receipt Date: 20050201
  Transmission Date: 20070319
  Serious: Yes (Hospitalization)
  Sender: FDA-Public Use
  Company Number: 2005UW01855

PATIENT
  Age: 36 Year
  Sex: Female
  Weight: 68.0396 kg

DRUGS (1)
  1. PRILOSEC OTC [Suspect]
     Indication: EROSIVE OESOPHAGITIS
     Dosage: 1 DF QD PO
     Route: 048
     Dates: start: 20040131, end: 20050131

REACTIONS (1)
  - ANXIETY [None]
